FAERS Safety Report 5315603-X (Version None)
Quarter: 2007Q2

REPORT INFORMATION
  Report Type: 
  Country: None (occurrence: None)
  Receive Date: 20070427
  Receipt Date: 20070413
  Transmission Date: 20071010
  Serious: Yes (Hospitalization)
  Sender: FDA-Public Use
  Company Number: 2007RR-06922

PATIENT
  Age: 28 Year
  Sex: Male

DRUGS (5)
  1. IBUPROFEN [Suspect]
     Dosage: 200 MG
  2. ACETAMINOPHEN [Suspect]
     Dosage: 200 MG
  3. HALOPERIDOL [Concomitant]
  4. LITHIUM CARBONATE [Concomitant]
  5. ZIPRASIDONE [Concomitant]

REACTIONS (14)
  - ACUTE HEPATIC FAILURE [None]
  - AGITATION [None]
  - COAGULOPATHY [None]
  - DIALYSIS [None]
  - DYSPNOEA [None]
  - GASTROINTESTINAL NECROSIS [None]
  - HAEMODIALYSIS [None]
  - HAEMODYNAMIC INSTABILITY [None]
  - LARGE INTESTINAL HAEMORRHAGE [None]
  - LIVER TRANSPLANT [None]
  - METABOLIC ACIDOSIS [None]
  - MULTIPLE DRUG OVERDOSE INTENTIONAL [None]
  - RENAL FAILURE [None]
  - RHABDOMYOLYSIS [None]
